FAERS Safety Report 25736473 (Version 2)
Quarter: 2025Q3

REPORT INFORMATION
  Report Type: Report from Study
  Country: US (occurrence: US)
  Receive Date: 20250828
  Receipt Date: 20250905
  Transmission Date: 20251021
  Serious: Yes (Death)
  Sender: IPSEN BIOPHARMACEUTICALS, INC.
  Company Number: US-IPSEN Group, Research and Development-2025-20561

PATIENT
  Age: 18 Year
  Sex: Female

DRUGS (3)
  1. TAZEMETOSTAT [Suspect]
     Active Substance: TAZEMETOSTAT
     Indication: Chondrosarcoma
  2. TAZEMETOSTAT [Suspect]
     Active Substance: TAZEMETOSTAT
     Indication: Chordoma
  3. TAZEMETOSTAT [Suspect]
     Active Substance: TAZEMETOSTAT
     Indication: Off label use

REACTIONS (2)
  - Death [Fatal]
  - Off label use [Unknown]
